FAERS Safety Report 7237125 (Version 3)
Quarter: 2014Q2

REPORT INFORMATION
  Report Type: Spontaneous
  Country: US (occurrence: US)
  Receive Date: 20100105
  Receipt Date: 20140502
  Transmission Date: 20141212
  Serious: Yes (Hospitalization)
  Sender: FDA-Public Use
  Company Number: US-BAYER-200944103NA

PATIENT
  Age: 29 Year
  Sex: Female
  Weight: 68.03 kg

DRUGS (1)
  1. MIRENA [Suspect]
     Indication: CONTRACEPTION
     Dosage: 20 MCG/24HR, CONT
     Route: 015
     Dates: start: 20080701, end: 20090204

REACTIONS (5)
  - Uterine perforation [Unknown]
  - Injury [Unknown]
  - Pain [Unknown]
  - Emotional distress [None]
  - Abdominal pain lower [Unknown]
